FAERS Safety Report 19341818 (Version 1)
Quarter: 2021Q2

REPORT INFORMATION
  Report Type: Spontaneous
  Country: US (occurrence: US)
  Receive Date: 20210530
  Receipt Date: 20210530
  Transmission Date: 20210717
  Serious: Yes (Other)
  Sender: FDA-Public Use
  Company Number: US-PURDUE-USA-2020-0198031

PATIENT
  Sex: Male

DRUGS (9)
  1. OXYCODONE/ ACETAMINOPHEN TABLETS [Suspect]
     Active Substance: ACETAMINOPHEN\OXYCODONE HYDROCHLORIDE
     Indication: WRIST FRACTURE
     Dosage: UNK
     Route: 048
     Dates: start: 1998
  2. MS CONTIN [Suspect]
     Active Substance: MORPHINE SULFATE
     Indication: WRIST FRACTURE
     Dosage: UNK
     Route: 048
     Dates: start: 1998
  3. OXYIR [Suspect]
     Active Substance: OXYCODONE HYDROCHLORIDE
     Indication: WRIST FRACTURE
     Dosage: UNK
     Route: 048
     Dates: start: 1998
  4. HYDROCODONE BITARTRATE AND ACETAMINOPHEN [Suspect]
     Active Substance: ACETAMINOPHEN\HYDROCODONE BITARTRATE
     Indication: WRIST FRACTURE
     Dosage: UNK
     Route: 048
     Dates: start: 1998
  5. OXYCODONE HCL TABLETS (RHODES 91?490) [Suspect]
     Active Substance: OXYCODONE HYDROCHLORIDE
     Indication: WRIST FRACTURE
     Dosage: UNK
     Route: 048
     Dates: start: 1998
  6. OXYCODONE HCL CR TABLETS (SIMILAR TO NDA 22?272) [Suspect]
     Active Substance: OXYCODONE HYDROCHLORIDE
     Indication: WRIST FRACTURE
     Dosage: UNK
     Route: 048
     Dates: start: 1998
  7. TRAMADOL. [Suspect]
     Active Substance: TRAMADOL
     Indication: WRIST FRACTURE
     Dosage: UNK
     Route: 048
     Dates: start: 1998
  8. OXYCONTIN [Suspect]
     Active Substance: OXYCODONE HYDROCHLORIDE
     Indication: WRIST FRACTURE
     Dosage: UNK
     Route: 048
     Dates: start: 1998
  9. HYDROMORPHONE TABLET (RHODES) [Suspect]
     Active Substance: HYDROMORPHONE
     Indication: WRIST FRACTURE
     Dosage: UNK
     Route: 048
     Dates: start: 1998

REACTIONS (1)
  - Drug dependence [Unknown]
